FAERS Safety Report 4883416-9 (Version None)
Quarter: 2006Q1

REPORT INFORMATION
  Report Type: 
  Country: None (occurrence: None)
  Receive Date: 20060118
  Receipt Date: 20060106
  Transmission Date: 20060701
  Serious: Yes (Hospitalization)
  Sender: FDA-Public Use
  Company Number: GB-MERCK-0601GBR00049

PATIENT
  Age: 56 Year
  Sex: Male

DRUGS (2)
  1. ZOCOR [Suspect]
     Route: 048
  2. ZOCOR [Suspect]
     Route: 048

REACTIONS (4)
  - DRUG INTERACTION [None]
  - HEPATIC ENZYME INCREASED [None]
  - MYOPATHY [None]
  - MYOSITIS [None]
